FAERS Safety Report 5022470-0 (Version None)
Quarter: 2006Q2

REPORT INFORMATION
  Report Type: 
  Country: None (occurrence: None)
  Receive Date: 20060605
  Receipt Date: 20060523
  Transmission Date: 20061013
  Serious: Yes (Other)
  Sender: FDA-Public Use
  Company Number: 2004072676

PATIENT
  Age: 22 Year
  Sex: Female

DRUGS (6)
  1. SILDENAFIL CITRATE [Suspect]
     Indication: PULMONARY HYPERTENSION
     Dosage: 150 MG, ORAL
     Route: 048
  2. DILTIAZEM [Suspect]
     Indication: PULMONARY HYPERTENSION
     Dosage: 60 MG
  3. ARGININE (ARGININE) [Suspect]
     Indication: PULMONARY HYPERTENSION
     Dosage: 3 GRAM
  4. OXYGEN (OXYGEN) [Concomitant]
  5. NIFEDIPINE [Concomitant]
  6. COUMADIN [Concomitant]

REACTIONS (13)
  - CAESAREAN SECTION [None]
  - CYANOSIS [None]
  - DISEASE PROGRESSION [None]
  - DRUG EXPOSURE DURING PREGNANCY [None]
  - FAILED INDUCTION OF LABOUR [None]
  - FOETAL GROWTH RETARDATION [None]
  - OEDEMA PERIPHERAL [None]
  - PLATELET COUNT DECREASED [None]
  - PRE-ECLAMPSIA [None]
  - PREGNANCY [None]
  - PROCEDURAL PAIN [None]
  - PROTEINURIA [None]
  - PULMONARY ARTERIAL PRESSURE INCREASED [None]
